FAERS Safety Report 9437282 (Version 3)
Quarter: 2013Q3

REPORT INFORMATION
  Report Type: Spontaneous
  Country: GB (occurrence: None)
  Receive Date: 20130731
  Receipt Date: 20130815
  Transmission Date: 20140515
  Serious: Yes (Death)
  Sender: FDA-Public Use
  Company Number: AUR-APL-2013-06267

PATIENT
  Age: 40 Year
  Sex: Male

DRUGS (2)
  1. RISPERIDONE [Suspect]
     Indication: SCHIZOPHRENIA, PARANOID TYPE
     Route: 048
  2. PAROXETINE (PAROXETINE) [Suspect]
     Indication: SCHIZOPHRENIA, PARANOID TYPE

REACTIONS (4)
  - Drug interaction [None]
  - Alcohol use [None]
  - Toxicity to various agents [None]
  - Overdose [None]
